FAERS Safety Report 11984524 (Version 3)
Quarter: 2016Q2

REPORT INFORMATION
  Report Type: Spontaneous
  Country: US (occurrence: US)
  Receive Date: 20160201
  Receipt Date: 20160609
  Transmission Date: 20160815
  Serious: No
  Sender: FDA-Public Use
  Company Number: US-BAYER-2016-019112

PATIENT
  Age: 34 Year
  Sex: Female

DRUGS (1)
  1. MIRENA [Suspect]
     Active Substance: LEVONORGESTREL
     Indication: CONTRACEPTION
     Dosage: 20 MCG/24HR, CONT
     Route: 015
     Dates: start: 20140709, end: 20160125

REACTIONS (3)
  - Unintentional medical device removal [Unknown]
  - Device use issue [Unknown]
  - Medical device monitoring error [Unknown]

NARRATIVE: CASE EVENT DATE: 20160125
